FAERS Safety Report 4949149-5 (Version None)
Quarter: 2006Q1

REPORT INFORMATION
  Report Type: 
  Country: None (occurrence: None)
  Receive Date: 20060321
  Receipt Date: 20060130
  Transmission Date: 20060701
  Serious: Yes (Hospitalization)
  Sender: FDA-Public Use
  Company Number: US-MERCK-0601USA03551

PATIENT
  Age: 70 Year
  Sex: Female
  Weight: 64 kg

DRUGS (4)
  1. VIOXX [Suspect]
     Indication: ARTHRITIS
     Route: 048
     Dates: start: 19991201, end: 20010804
  2. VIOXX [Suspect]
     Indication: PAIN
     Route: 048
     Dates: start: 19991201, end: 20010804
  3. ZESTRIL [Concomitant]
     Route: 048
  4. BAYCOL [Concomitant]
     Route: 048

REACTIONS (10)
  - BLOOD PRESSURE ABNORMAL [None]
  - CAROTID ARTERY STENOSIS [None]
  - CEREBRAL INFARCTION [None]
  - CEREBROVASCULAR ACCIDENT [None]
  - DEPRESSION [None]
  - ESCHERICHIA URINARY TRACT INFECTION [None]
  - HEART RATE INCREASED [None]
  - THYROID CYST [None]
  - THYROID MASS [None]
  - TRICUSPID VALVE INCOMPETENCE [None]
